FAERS Safety Report 4692025-6 (Version None)
Quarter: 2005Q2

REPORT INFORMATION
  Report Type: 
  Country: None (occurrence: None)
  Receive Date: 20050608
  Receipt Date: 20041101
  Transmission Date: 20051028
  Serious: Yes (Other)
  Sender: FDA-Public Use
  Company Number: 385063

PATIENT

DRUGS (3)
  1. ACCUTANE [Suspect]
     Dates: start: 20050415, end: 20050815
  2. ISOTRETINOIN [Suspect]
     Dates: start: 20030115, end: 20030315
  3. BIRTH CONTROL PILLS (ORAL CONTRACEPTIVE NOS) [Concomitant]

REACTIONS (3)
  - DRUG EXPOSURE DURING PREGNANCY [None]
  - NO ADVERSE EFFECT [None]
  - PREGNANCY [None]
